FAERS Safety Report 7974718-8 (Version None)
Quarter: 2011Q4

REPORT INFORMATION
  Report Type: 
  Country: None (occurrence: None)
  Receive Date: 20111213
  Receipt Date: 20111206
  Transmission Date: 20120403
  Serious: Yes (Other)
  Sender: FDA-Public Use
  Company Number: US-US-EMD SERONO, INC.-7010287

PATIENT
  Sex: Female
  Weight: 76 kg

DRUGS (4)
  1. AMANTADINE HCL [Concomitant]
     Indication: MULTIPLE SCLEROSIS
  2. REBIF [Suspect]
     Indication: MULTIPLE SCLEROSIS
     Route: 058
     Dates: start: 20021014
  3. TRAMADOL HCL [Concomitant]
     Indication: MULTIPLE SCLEROSIS
  4. BACLOFEN [Concomitant]
     Indication: MULTIPLE SCLEROSIS

REACTIONS (16)
  - SPINAL FRACTURE [None]
  - TENDONITIS [None]
  - MULTIPLE SCLEROSIS RELAPSE [None]
  - BURSITIS [None]
  - LACERATION [None]
  - FALL [None]
  - SPINAL LAMINECTOMY [None]
  - INTERVERTEBRAL DISC PROTRUSION [None]
  - VERTIGO [None]
  - CARPAL TUNNEL SYNDROME [None]
  - CRANIOCEREBRAL INJURY [None]
  - MUSCLE SPASMS [None]
  - HIP ARTHROPLASTY [None]
  - INTERVERTEBRAL DISC COMPRESSION [None]
  - ROAD TRAFFIC ACCIDENT [None]
  - NYSTAGMUS [None]
